FAERS Safety Report 6524476-9 (Version None)
Quarter: 2010Q1

REPORT INFORMATION
  Report Type: 
  Country: None (occurrence: None)
  Receive Date: 20100104
  Receipt Date: 20091223
  Transmission Date: 20100710
  Serious: Yes (Hospitalization, Other)
  Sender: FDA-Public Use
  Company Number: US-RB-027172-09

PATIENT
  Age: 69 Year
  Sex: Male

DRUGS (5)
  1. MUCINEX [Suspect]
     Indication: NASAL CONGESTION
     Route: 048
     Dates: start: 20091211
  2. PEPCID [Concomitant]
     Indication: NASAL CONGESTION
  3. PEPCID [Concomitant]
  4. ZYRTEC [Concomitant]
     Indication: NASAL CONGESTION
  5. ERYTHROMYCIN [Suspect]

REACTIONS (2)
  - FAECES DISCOLOURED [None]
  - ULCER HAEMORRHAGE [None]
